FAERS Safety Report 5599460-2 (Version None)
Quarter: 2007Q4

REPORT INFORMATION
  Report Type: 
  Country: None (occurrence: None)
  Receive Date: 20071226
  Receipt Date: 20070726
  Transmission Date: 20080405
  Serious: Yes (Other)
  Sender: FDA-Public Use
  Company Number: PHEH2007US10444

PATIENT
  Sex: Female

DRUGS (1)
  1. VIVELLE [Suspect]
     Dosage: TRANSDERMAL
     Route: 062

REACTIONS (4)
  - ABDOMINAL DISTENSION [None]
  - EYELID OEDEMA [None]
  - LIP OEDEMA [None]
  - OEDEMA PERIPHERAL [None]
